FAERS Safety Report 22120767 (Version 2)
Quarter: 2023Q2

REPORT INFORMATION
  Report Type: Spontaneous
  Country: US (occurrence: US)
  Receive Date: 20230321
  Receipt Date: 20230430
  Transmission Date: 20230721
  Serious: No
  Sender: FDA-Public Use
  Company Number: US-SA-SAC20230320000264

PATIENT
  Sex: Female
  Weight: 114.75 kg

DRUGS (14)
  1. DUPIXENT [Suspect]
     Active Substance: DUPILUMAB
     Indication: Asthma
     Dosage: 600 MG, 1X
     Route: 058
  2. DUPIXENT [Suspect]
     Active Substance: DUPILUMAB
     Indication: Illness
     Dosage: 300 MG, QOW
     Route: 058
  3. TRELEGY ELLIPTA [Concomitant]
     Active Substance: FLUTICASONE FUROATE\UMECLIDINIUM BROMIDE\VILANTEROL TRIFENATATE
  4. CHLORTHALIDONE [Concomitant]
     Active Substance: CHLORTHALIDONE
  5. ALBUTEROL SULFATE [Concomitant]
     Active Substance: ALBUTEROL SULFATE
  6. VITAMIN D3 [Concomitant]
     Active Substance: CHOLECALCIFEROL
  7. PANTOPRAZOLE [Concomitant]
     Active Substance: PANTOPRAZOLE
  8. ZINC [Concomitant]
     Active Substance: ZINC
  9. MONTELUKAST [Concomitant]
     Active Substance: MONTELUKAST SODIUM
  10. EPIPEN [Concomitant]
     Active Substance: EPINEPHRINE
  11. PROAIR DIGIHALER [Concomitant]
     Active Substance: ALBUTEROL SULFATE
  12. POTASSIUM CHLORIDE [Concomitant]
     Active Substance: POTASSIUM CHLORIDE
  13. LISINOPRIL [Concomitant]
     Active Substance: LISINOPRIL
  14. MAGNESIUM [Concomitant]
     Active Substance: MAGNESIUM

REACTIONS (1)
  - Malaise [Unknown]
